FAERS Safety Report 8199202-0 (Version None)
Quarter: 2012Q1

REPORT INFORMATION
  Report Type: 
  Country: None (occurrence: None)
  Receive Date: 20120306
  Receipt Date: 20120224
  Transmission Date: 20120608
  Serious: Yes (Hospitalization)
  Sender: FDA-Public Use
  Company Number: 2012AP000526

PATIENT
  Age: 22 Year
  Sex: Female

DRUGS (8)
  1. AMPHOTERICIN B [Suspect]
     Indication: MENINGITIS CRYPTOCOCCAL
     Dosage: 5 MG/KG;QD
  2. FLUCONAZOLE [Suspect]
     Dosage: 200 MG;QD
  3. TACROLIMUS [Suspect]
     Indication: IMMUNOSUPPRESSION
  4. PREDNISONE [Suspect]
     Indication: IMMUNOSUPPRESSION
  5. ORTHOCLONE OKT3 [Concomitant]
  6. CORTICOSTEROIDS [Concomitant]
  7. MYCOPHENOLATE MOFETIL [Suspect]
     Indication: IMMUNOSUPPRESSION
  8. FLUCYTOSINE [Suspect]
     Indication: RENAL IMPAIRMENT

REACTIONS (10)
  - KIDNEY TRANSPLANT REJECTION [None]
  - PROTEIN TOTAL INCREASED [None]
  - HEADACHE [None]
  - MENINGITIS CRYPTOCOCCAL [None]
  - IMMUNE RECONSTITUTION SYNDROME [None]
  - CLONUS [None]
  - PAPILLOEDEMA [None]
  - BLOOD CREATININE INCREASED [None]
  - DIALYSIS [None]
  - BLOOD GLUCOSE DECREASED [None]
